FAERS Safety Report 10653312 (Version 3)
Quarter: 2015Q2

REPORT INFORMATION
  Report Type: Spontaneous
  Country: US (occurrence: US)
  Receive Date: 20141215
  Receipt Date: 20150415
  Transmission Date: 20150821
  Serious: Yes (Other)
  Sender: FDA-Public Use
  Company Number: US-BIOMARINAP-US-2014-104978

PATIENT
  Sex: Male

DRUGS (1)
  1. ALDURAZYME [Suspect]
     Active Substance: LARONIDASE
     Indication: MUCOPOLYSACCHARIDOSIS I
     Dosage: UNK
     Route: 042

REACTIONS (1)
  - Surgery [Not Recovered/Not Resolved]
